FAERS Safety Report 20797790 (Version 1)
Quarter: 2022Q2

REPORT INFORMATION
  Report Type: Spontaneous
  Country: US (occurrence: US)
  Receive Date: 20220506
  Receipt Date: 20220506
  Transmission Date: 20220721
  Serious: Yes (Other)
  Sender: FDA-Public Use
  Company Number: US-TARO-2022TAR00625

PATIENT
  Age: 67 Year
  Sex: Male

DRUGS (2)
  1. AMIODARONE [Suspect]
     Active Substance: AMIODARONE
     Indication: Atrial flutter
     Dosage: 200 MG, QD
     Route: 065
  2. TICAGRELOR [Concomitant]
     Active Substance: TICAGRELOR
     Indication: Atrial flutter
     Dosage: 90 MG, BID
     Route: 065

REACTIONS (2)
  - Electrocardiogram P wave abnormal [Unknown]
  - Electrocardiogram PR prolongation [Unknown]
